FAERS Safety Report 7164297-X (Version None)
Quarter: 2010Q4

REPORT INFORMATION
  Report Type: 
  Country: None (occurrence: None)
  Receive Date: 20101215
  Receipt Date: 20101203
  Transmission Date: 20110411
  Serious: Yes (Hospitalization)
  Sender: FDA-Public Use
  Company Number: PHHY2010JP82841

PATIENT
  Age: 80 Year
  Sex: Male

DRUGS (1)
  1. RASILEZ [Suspect]
     Dosage: 150MG DAILY
     Route: 048
     Dates: end: 20101203

REACTIONS (2)
  - BLOOD CREATININE INCREASED [None]
  - RENAL IMPAIRMENT [None]
